FAERS Safety Report 14290847 (Version 3)
Quarter: 2018Q1

REPORT INFORMATION
  Report Type: Report from Study
  Country: CA (occurrence: CA)
  Receive Date: 20171215
  Receipt Date: 20180208
  Transmission Date: 20180509
  Serious: Yes (Other)
  Sender: FDA-Public Use
  Company Number: CA-JNJFOC-20171217227

PATIENT
  Sex: Female

DRUGS (3)
  1. STELARA [Suspect]
     Active Substance: USTEKINUMAB
     Indication: CROHN^S DISEASE
     Route: 058
     Dates: end: 20180130
  2. STELARA [Suspect]
     Active Substance: USTEKINUMAB
     Indication: CROHN^S DISEASE
     Dosage: STRENGTH = 90 MG??56 DAYS
     Route: 058
     Dates: start: 20170824
  3. STELARA [Suspect]
     Active Substance: USTEKINUMAB
     Indication: CROHN^S DISEASE
     Route: 058
     Dates: start: 20170703

REACTIONS (5)
  - Treatment noncompliance [Unknown]
  - Decreased appetite [Unknown]
  - Pneumonia [Unknown]
  - Weight increased [Unknown]
  - Therapy cessation [Unknown]

NARRATIVE: CASE EVENT DATE: 2017
